FAERS Safety Report 5455590-7 (Version None)
Quarter: 2007Q3

REPORT INFORMATION
  Report Type: 
  Country: None (occurrence: None)
  Receive Date: 20070913
  Receipt Date: 20070913
  Transmission Date: 20080115
  Serious: Yes (Death)
  Sender: FDA-Public Use
  Company Number: None

PATIENT
  Sex: Female
  Weight: 56 kg

DRUGS (2)
  1. ARIXTRA [Suspect]
     Indication: DEEP VEIN THROMBOSIS
     Dosage: 5MG DAILY SQ
     Route: 058
     Dates: start: 20070709, end: 20070902
  2. ARIXTRA [Suspect]
     Indication: PULMONARY EMBOLISM
     Dosage: 5MG DAILY SQ
     Route: 058
     Dates: start: 20070709, end: 20070902

REACTIONS (3)
  - CARDIO-RESPIRATORY ARREST [None]
  - DISEASE PROGRESSION [None]
  - LUNG CANCER METASTATIC [None]
